FAERS Safety Report 14485443 (Version 2)
Quarter: 2018Q1

REPORT INFORMATION
  Report Type: Report from Study
  Country: UG (occurrence: UG)
  Receive Date: 20180205
  Receipt Date: 20180216
  Transmission Date: 20180509
  Serious: Yes (Congenital Anomaly, Other)
  Sender: FDA-Public Use
  Company Number: UG-BRISTOL-MYERS SQUIBB COMPANY-BMS-2018-006758

PATIENT
  Age: 0 Day
  Sex: Male
  Weight: 2.5 kg

DRUGS (7)
  1. FOLATE [Concomitant]
     Active Substance: FOLATE SODIUM
     Indication: PRODUCT USED FOR UNKNOWN INDICATION
     Dosage: UNK
     Route: 064
  2. TENOFOVIR DISOPROXIL FUMARATE. [Suspect]
     Active Substance: TENOFOVIR DISOPROXIL FUMARATE
     Indication: PRODUCT USED FOR UNKNOWN INDICATION
     Dosage: 300 MG, QD
     Route: 064
     Dates: start: 20171206, end: 20180112
  3. LAMIVUDINE. [Suspect]
     Active Substance: LAMIVUDINE
     Indication: PRODUCT USED FOR UNKNOWN INDICATION
     Dosage: 300 MG, QD
     Route: 064
     Dates: start: 20171206, end: 20180112
  4. BENZATHINE PENICILLIN [Suspect]
     Active Substance: PENICILLIN G BENZATHINE
     Indication: PRODUCT USED FOR UNKNOWN INDICATION
     Route: 064
  5. EFAVIRENZ. [Suspect]
     Active Substance: EFAVIRENZ
     Indication: PRODUCT USED FOR UNKNOWN INDICATION
     Dosage: 600 MG, QD
     Route: 064
     Dates: start: 20171206, end: 20180112
  6. TRIMETHOPRIM SULFAMETHOXAZOLE [Suspect]
     Active Substance: SULFAMETHOXAZOLE\TRIMETHOPRIM
     Indication: PRODUCT USED FOR UNKNOWN INDICATION
     Dosage: UNK
     Route: 064
  7. SECNIDAZOLE [Suspect]
     Active Substance: SECNIDAZOLE
     Indication: PRODUCT USED FOR UNKNOWN INDICATION
     Dosage: UNK
     Route: 064

REACTIONS (12)
  - Connective tissue disorder [Unknown]
  - Cushingoid [Unknown]
  - Foetal exposure during pregnancy [Unknown]
  - Talipes [Unknown]
  - Wrist deformity [Unknown]
  - Hair texture abnormal [Unknown]
  - Micrognathia [Unknown]
  - Developmental hip dysplasia [Unknown]
  - Skull malformation [Unknown]
  - Premature baby [Unknown]
  - Elbow deformity [Unknown]
  - Congenital knee deformity [Unknown]

NARRATIVE: CASE EVENT DATE: 20180112
